FAERS Safety Report 8046194-0 (Version None)
Quarter: 2012Q1

REPORT INFORMATION
  Report Type: 
  Country: None (occurrence: None)
  Receive Date: 20120113
  Receipt Date: 20120113
  Transmission Date: 20120608
  Serious: No
  Sender: FDA-Public Use
  Company Number: None

PATIENT
  Sex: Male
  Weight: 80.9 kg

DRUGS (1)
  1. ERBITUX [Suspect]
     Dosage: 1425 MG
     Dates: end: 20110428

REACTIONS (2)
  - PERIPHERAL SENSORY NEUROPATHY [None]
  - ACTIVITIES OF DAILY LIVING IMPAIRED [None]
